FAERS Safety Report 17575033 (Version 1)
Quarter: 2020Q1

REPORT INFORMATION
  Report Type: Spontaneous
  Country: DK (occurrence: DK)
  Receive Date: 20200324
  Receipt Date: 20200324
  Transmission Date: 20200409
  Serious: Yes (Hospitalization, Other)
  Sender: FDA-Public Use
  Company Number: DK-AUROBINDO-AUR-APL-2020-014834

PATIENT
  Age: 71 Year
  Sex: Male

DRUGS (3)
  1. LOSARTAN POTASSIUM / HYDROCHLOROTHIAZIDE FILM-COATED [Suspect]
     Active Substance: HYDROCHLOROTHIAZIDE\LOSARTAN POTASSIUM
     Indication: HYPERTENSION
     Dosage: STYRKE: 50+12.5 MG, 100+25 MG, , DOSIS: VARIATION FRA 50+12.5 MG 2XDGL, OG 100+25 MG 1XDGL
     Route: 048
     Dates: start: 20191209, end: 20200228
  2. CYANOCOBALAMIN. [Concomitant]
     Active Substance: CYANOCOBALAMIN
     Indication: VITAMIN B12 DEFICIENCY
     Dosage: 1 MILLIGRAM, ONCE A DAY
     Route: 048
     Dates: start: 201811
  3. SILDENAFIL 1A FARMA [Concomitant]
     Indication: ERECTILE DYSFUNCTION
     Dosage: STYRKE: 100 MG, DOSIS: 0.5-1 TABLET EFTER BEHOV 1 TIMES F?R VIRKNING ?NSKES
     Route: 048
     Dates: start: 201605

REACTIONS (2)
  - Hypokalaemia [Recovering/Resolving]
  - Hyponatraemia [Recovering/Resolving]

NARRATIVE: CASE EVENT DATE: 202002
